FAERS Safety Report 5086386-6 (Version None)
Quarter: 2006Q3

REPORT INFORMATION
  Report Type: 
  Country: None (occurrence: None)
  Receive Date: 20060821
  Receipt Date: 20060821
  Transmission Date: 20061208
  Serious: No
  Sender: FDA-Public Use
  Company Number: None

PATIENT
  Sex: Female

DRUGS (2)
  1. ZYRTEC [Suspect]
     Dosage: TABLET
  2. ZYPREXA [Suspect]
     Dosage: TABLET

REACTIONS (9)
  - DRUG ABUSER [None]
  - DRUG DEPENDENCE [None]
  - DRUG DISPENSING ERROR [None]
  - HALLUCINATION [None]
  - HALLUCINATION, VISUAL [None]
  - MEDICATION ERROR [None]
  - PARANOIA [None]
  - WEIGHT INCREASED [None]
  - WRONG DRUG ADMINISTERED [None]
